FAERS Safety Report 9100480 (Version 3)
Quarter: 2013Q1

REPORT INFORMATION
  Report Type: Spontaneous
  Country: US (occurrence: US)
  Receive Date: 20130215
  Receipt Date: 20130318
  Transmission Date: 20140127
  Serious: Yes (Other)
  Sender: FDA-Public Use
  Company Number: PHEH2013US003655

PATIENT
  Sex: Female
  Weight: 96.15 kg

DRUGS (2)
  1. GILENYA [Suspect]
     Indication: MULTIPLE SCLEROSIS
     Dosage: 0.5 MG, QD
     Route: 048
     Dates: start: 20120710
  2. GILENYA [Suspect]
     Dosage: 0.5 MG, QD
     Route: 048

REACTIONS (13)
  - Dysphonia [Not Recovered/Not Resolved]
  - Aphasia [Not Recovered/Not Resolved]
  - Cognitive disorder [Not Recovered/Not Resolved]
  - Blister [Not Recovered/Not Resolved]
  - Neck pain [Not Recovered/Not Resolved]
  - Scab [Not Recovered/Not Resolved]
  - Hypoaesthesia [Not Recovered/Not Resolved]
  - Pain [Not Recovered/Not Resolved]
  - Fatigue [Not Recovered/Not Resolved]
  - Paraesthesia oral [Not Recovered/Not Resolved]
  - Bronchitis [Unknown]
  - Paraesthesia [Not Recovered/Not Resolved]
  - Drug ineffective [Unknown]
